FAERS Safety Report 9054572 (Version 1)
Quarter: 2013Q1

REPORT INFORMATION
  Report Type: Spontaneous
  Country: RU (occurrence: RU)
  Receive Date: 20130208
  Receipt Date: 20130208
  Transmission Date: 20140127
  Serious: Yes (Hospitalization)
  Sender: FDA-Public Use
  Company Number: RU-SANOFI-AVENTIS-2013SA008563

PATIENT
  Age: 37 Year
  Sex: Female

DRUGS (7)
  1. LANTUS [Suspect]
     Indication: TYPE 1 DIABETES MELLITUS
     Route: 058
  2. APIDRA [Suspect]
     Indication: TYPE 1 DIABETES MELLITUS
     Route: 058
  3. INSULIN [Suspect]
     Indication: TYPE 1 DIABETES MELLITUS
     Route: 058
  4. PROTAPHANE [Suspect]
     Indication: TYPE 1 DIABETES MELLITUS
     Route: 058
  5. INSULIN DETEMIR [Concomitant]
     Indication: TYPE 1 DIABETES MELLITUS
     Dosage: STRENGTH: 100 IU/ML SOLUTION
     Route: 058
  6. NOVORAPID [Concomitant]
     Indication: TYPE 1 DIABETES MELLITUS
     Dosage: STRENGTH: 100 IU/ML SOLUTION
     Route: 058
  7. VICTOZA [Concomitant]
     Indication: TYPE 1 DIABETES MELLITUS
     Dosage: STRENGTH: 6 MG/1 ML SOLUTION
     Route: 058

REACTIONS (9)
  - Constipation [Not Recovered/Not Resolved]
  - Diabetes mellitus [Not Recovered/Not Resolved]
  - Hyperglycaemia [Not Recovered/Not Resolved]
  - Diabetic ketoacidosis [Not Recovered/Not Resolved]
  - Ketonuria [Not Recovered/Not Resolved]
  - Depressed level of consciousness [Not Recovered/Not Resolved]
  - Oedema [Not Recovered/Not Resolved]
  - Weight increased [Not Recovered/Not Resolved]
  - Ketosis [None]
